FAERS Safety Report 9121061 (Version 3)
Quarter: 2013Q2

REPORT INFORMATION
  Report Type: Spontaneous
  Country: US (occurrence: US)
  Receive Date: 20130226
  Receipt Date: 20130405
  Transmission Date: 20140414
  Serious: Yes (Hospitalization, Other)
  Sender: FDA-Public Use
  Company Number: US-BRISTOL-MYERS SQUIBB COMPANY-17293440

PATIENT
  Age: 57 Year
  Sex: Male
  Weight: 83.44 kg

DRUGS (7)
  1. YERVOY [Suspect]
     Indication: METASTATIC MALIGNANT MELANOMA
     Dosage: 1DF:1DOSE
     Route: 042
     Dates: start: 20130108
  2. BYSTOLIC [Concomitant]
     Dosage: TABS
     Route: 048
  3. IBUPROFEN [Concomitant]
     Dosage: TABS
     Route: 048
  4. VITAMIN D [Concomitant]
     Dosage: CAPS?1DF-2000 UNITS
  5. LYRICA [Concomitant]
     Route: 048
  6. BENADRYL [Concomitant]
     Dosage: BENADRYL ALLERGY 25MG CAPS
  7. PREDNISONE [Concomitant]
     Dosage: TABS
     Route: 048

REACTIONS (8)
  - Dyspnoea [Recovering/Resolving]
  - Malignant neoplasm progression [Unknown]
  - Productive cough [Unknown]
  - Eosinophilia [Unknown]
  - Rash pruritic [Unknown]
  - Skin exfoliation [Unknown]
  - Abdominal discomfort [Unknown]
  - Muscle spasms [Unknown]
